FAERS Safety Report 5536473-0 (Version None)
Quarter: 2007Q4

REPORT INFORMATION
  Report Type: 
  Country: None (occurrence: None)
  Receive Date: 20071206
  Receipt Date: 20071121
  Transmission Date: 20080405
  Serious: Yes (Other)
  Sender: FDA-Public Use
  Company Number: US-AMGEN-US242695

PATIENT
  Sex: Female
  Weight: 56.8 kg

DRUGS (4)
  1. PROCRIT [Suspect]
     Indication: ANAEMIA OF MALIGNANT DISEASE
     Route: 058
     Dates: start: 20070613, end: 20070820
  2. RITUXAN [Suspect]
     Dates: start: 20070606, end: 20070806
  3. CYTOXAN [Suspect]
     Dates: start: 20070606, end: 20070806
  4. FLUDARA [Suspect]
     Dates: start: 20070606, end: 20070806

REACTIONS (2)
  - PANCYTOPENIA [None]
  - THERAPEUTIC RESPONSE DECREASED [None]
